FAERS Safety Report 5664175-9 (Version None)
Quarter: 2008Q1

REPORT INFORMATION
  Report Type: 
  Country: None (occurrence: None)
  Receive Date: 20080312
  Receipt Date: 20080225
  Transmission Date: 20080703
  Serious: Yes (Hospitalization)
  Sender: FDA-Public Use
  Company Number: 2007BI022188

PATIENT
  Age: 25 Year
  Sex: Female
  Weight: 135.0812 kg

DRUGS (11)
  1. AVONEX [Suspect]
     Indication: MULTIPLE SCLEROSIS
     Dosage: 30 UG;QW;IM
     Route: 030
     Dates: start: 20020620
  2. METHOCARBAMOL [Concomitant]
  3. HYDROXYZ [Concomitant]
  4. OXYCODONE HCL [Concomitant]
  5. GLIMEPIRIDE [Concomitant]
  6. XANAX [Concomitant]
  7. CYMBALTA [Concomitant]
  8. VERAPAMIL [Concomitant]
  9. NAPROXEN [Concomitant]
  10. NORTRIPTYLINE HCL [Concomitant]
  11. CYCLOBENZAPRINE HCL [Concomitant]

REACTIONS (2)
  - INTERVERTEBRAL DISC PROTRUSION [None]
  - LUMBAR RADICULOPATHY [None]
